FAERS Safety Report 5002650-0 (Version None)
Quarter: 2006Q2

REPORT INFORMATION
  Report Type: 
  Country: None (occurrence: None)
  Receive Date: 20060510
  Receipt Date: 20060426
  Transmission Date: 20061013
  Serious: Yes (Hospitalization)
  Sender: FDA-Public Use
  Company Number: 2006RR-02132

PATIENT
  Age: 80 Year
  Sex: Male

DRUGS (3)
  1. AMOXICILLIN [Suspect]
     Indication: HELICOBACTER INFECTION
     Dosage: ORAL
     Route: 048
  2. CLARITHROMYCIN [Suspect]
     Indication: HELICOBACTER INFECTION
     Dosage: ORAL
     Route: 048
  3. HELICLEAR (LANSOPRAZOLE) [Suspect]
     Indication: HELICOBACTER INFECTION
     Dosage: ORAL
     Route: 048

REACTIONS (2)
  - MOUTH ULCERATION [None]
  - PHARYNGEAL ULCERATION [None]
